FAERS Safety Report 10081957 (Version 1)
Quarter: 2014Q2

REPORT INFORMATION
  Report Type: Spontaneous
  Country: HR (occurrence: HR)
  Receive Date: 20140416
  Receipt Date: 20140416
  Transmission Date: 20141212
  Serious: Yes (Life-Threatening)
  Sender: FDA-Public Use
  Company Number: HR-GLAXOSMITHKLINE-B0986414A

PATIENT
  Age: 71 Year
  Sex: Female

DRUGS (3)
  1. KETOCEF [Suspect]
     Indication: PROPHYLAXIS
     Dosage: 1.5G PER DAY
     Route: 042
     Dates: start: 20140327, end: 20140327
  2. CLOPIDOGREL [Concomitant]
     Dosage: 75MG PER DAY
     Route: 048
     Dates: start: 20140326
  3. ACETYLSALICYLIC ACID [Concomitant]
     Dosage: 100MG PER DAY
     Route: 048

REACTIONS (9)
  - Hypersensitivity [Recovered/Resolved]
  - Hypersensitivity [Recovered/Resolved]
  - Hyperhidrosis [Recovered/Resolved]
  - Dyspnoea [Recovered/Resolved]
  - Bronchospasm [Recovered/Resolved]
  - Localised oedema [Recovered/Resolved]
  - Face oedema [Recovered/Resolved]
  - Erythema [Recovered/Resolved]
  - Erythema [Recovered/Resolved]
